FAERS Safety Report 11599328 (Version 2)
Quarter: 2015Q4

REPORT INFORMATION
  Report Type: Spontaneous
  Country: US (occurrence: None)
  Receive Date: 20151006
  Receipt Date: 20151009
  Transmission Date: 20160304
  Serious: Yes (Hospitalization, Other)
  Sender: FDA-Public Use
  Company Number: US-MDT-ADR-2015-01909

PATIENT
  Age: 21 Year
  Sex: Male

DRUGS (2)
  1. FENTANYL INTRATHECAL (75 MCG/ML) [Suspect]
     Active Substance: FENTANYL
     Dosage: 7.98 MCG/DAY
  2. BACLOFEN INTRATHECAL (1000 MCG/ML) [Suspect]
     Active Substance: BACLOFEN

REACTIONS (3)
  - Incorrect dose administered [None]
  - Accidental overdose [None]
  - Drug prescribing error [None]
